FAERS Safety Report 6774066-8 (Version None)
Quarter: 2010Q2

REPORT INFORMATION
  Report Type: 
  Country: None (occurrence: None)
  Receive Date: 20100617
  Receipt Date: 20100604
  Transmission Date: 20101027
  Serious: No
  Sender: FDA-Public Use
  Company Number: US-B.I. PHARMACEUTICALS,INC./RIDGEFIELD-2010-BP-06406BP

PATIENT

DRUGS (3)
  1. VIRAMUNE [Suspect]
     Route: 048
  2. SEIZENTRY [Concomitant]
  3. ISENTRESS [Concomitant]

REACTIONS (1)
  - ABDOMINAL DISTENSION [None]
